FAERS Safety Report 8801187 (Version 1)
Quarter: 2012Q4

REPORT INFORMATION
  Report Type: 
  Country: US (occurrence: US)
  Receive Date: 20120920
  Receipt Date: 20120920
  Transmission Date: 20130627
  Serious: No
  Sender: FDA-Public Use
  Company Number: US-009507513-1209USA005724

PATIENT
  Sex: Female

DRUGS (7)
  1. SAPHRIS [Suspect]
     Route: 048
  2. FANAPT [Suspect]
     Dosage: 8 mg, bid
     Route: 048
  3. LEXAPRO [Suspect]
  4. SEROQUEL [Suspect]
  5. RISPERIDONE [Suspect]
  6. PRISTIQ [Concomitant]
  7. EFFEXOR XR [Concomitant]

REACTIONS (3)
  - Insomnia [Unknown]
  - Weight increased [Unknown]
  - Abnormal behaviour [Unknown]
